FAERS Safety Report 5690821-X (Version None)
Quarter: 2008Q2

REPORT INFORMATION
  Report Type: 
  Country: None (occurrence: None)
  Receive Date: 20080401
  Receipt Date: 20080328
  Transmission Date: 20081010
  Serious: Yes (Hospitalization)
  Sender: FDA-Public Use
  Company Number: B0512151A

PATIENT
  Age: 66 Year
  Sex: Male

DRUGS (7)
  1. REQUIP [Suspect]
     Indication: PARKINSON'S DISEASE
     Dosage: .25MG PER DAY
     Route: 048
     Dates: start: 20080129, end: 20080209
  2. CABERGOLINE [Concomitant]
     Indication: PARKINSON'S DISEASE
     Dosage: 1MG TWICE PER DAY
     Route: 048
     Dates: start: 20030708
  3. SELEGILINE HCL [Concomitant]
     Indication: PARKINSON'S DISEASE
     Dosage: 5MG PER DAY
     Route: 048
  4. CARBIDOPA AND LEVODOPA [Concomitant]
     Indication: PARKINSON'S DISEASE
     Dosage: 150MG PER DAY
     Route: 048
  5. HEAVY MAGNESIUM OXIDE [Concomitant]
     Dosage: 1.5G PER DAY
     Route: 048
  6. MOHRUS TAPE [Concomitant]
     Route: 062
  7. SEROQUEL [Concomitant]
     Dosage: 25MG PER DAY

REACTIONS (2)
  - HALLUCINATION, VISUAL [None]
  - PERSECUTORY DELUSION [None]
